FAERS Safety Report 5522572-6 (Version None)
Quarter: 2007Q4

REPORT INFORMATION
  Report Type: 
  Country: None (occurrence: None)
  Receive Date: 20071120
  Receipt Date: 20071109
  Transmission Date: 20080405
  Serious: Yes (Hospitalization)
  Sender: FDA-Public Use
  Company Number: US-PFIZER INC-2007094927

PATIENT
  Age: 54 Year
  Sex: Female
  Weight: 73 kg

DRUGS (5)
  1. AROMASIN [Suspect]
     Indication: BREAST CANCER
     Route: 048
     Dates: start: 20060101, end: 20070531
  2. PERCOCET [Concomitant]
     Indication: NEUROPATHY PERIPHERAL
  3. NEURONTIN [Concomitant]
     Indication: NEUROPATHY PERIPHERAL
  4. VITAMIN B6 [Concomitant]
     Indication: NEUROPATHY PERIPHERAL
  5. FOSAMAX [Concomitant]
     Indication: OSTEOPENIA

REACTIONS (1)
  - OSTEONECROSIS [None]
